FAERS Safety Report 13385165 (Version 1)
Quarter: 2017Q1

REPORT INFORMATION
  Report Type: Spontaneous
  Country: GB (occurrence: GB)
  Receive Date: 20170329
  Receipt Date: 20170329
  Transmission Date: 20170429
  Serious: Yes (Death)
  Sender: FDA-Public Use
  Company Number: GB-INTERNATIONAL MEDICATION SYSTEMS, LIMITED-1064803

PATIENT
  Age: 31 Year

DRUGS (3)
  1. PREGABALIN. [Suspect]
     Active Substance: PREGABALIN
  2. MORPHINE [Suspect]
     Active Substance: MORPHINE
     Indication: OVERDOSE
  3. DIAZEPAM. [Suspect]
     Active Substance: DIAZEPAM

REACTIONS (3)
  - Drug abuse [Fatal]
  - Death [Fatal]
  - Overdose [Fatal]

NARRATIVE: CASE EVENT DATE: 20160807
